FAERS Safety Report 23676457 (Version 1)
Quarter: 2024Q1

REPORT INFORMATION
  Report Type: Spontaneous
  Country: US (occurrence: US)
  Receive Date: 20240327
  Receipt Date: 20240327
  Transmission Date: 20240410
  Serious: No
  Sender: FDA-Public Use
  Company Number: US-PADAGIS-2024PAD00409

PATIENT

DRUGS (1)
  1. TESTOSTERONE CYPIONATE [Suspect]
     Active Substance: TESTOSTERONE CYPIONATE
     Indication: Product used for unknown indication
     Dosage: 140 MG, WEEKLY
     Route: 065
     Dates: start: 2023

REACTIONS (3)
  - Blood testosterone increased [Unknown]
  - Haematocrit increased [Unknown]
  - Haemoglobin increased [Unknown]
